FAERS Safety Report 19803207 (Version 1)
Quarter: 2021Q3

REPORT INFORMATION
  Report Type: Spontaneous
  Country: US (occurrence: JP)
  Receive Date: 20210908
  Receipt Date: 20210908
  Transmission Date: 20211014
  Serious: Yes (Hospitalization)
  Sender: FDA-Public Use
  Company Number: US-CELGENEUS-JPN-20210809439

PATIENT
  Age: 83 Year
  Sex: Male
  Weight: 42.4 kg

DRUGS (25)
  1. VENETOCLAX. [Suspect]
     Active Substance: VENETOCLAX
     Dosage: 50 MILLIGRAM
     Route: 065
     Dates: start: 20210113, end: 20210811
  2. CALONAL [Concomitant]
     Active Substance: ACETAMINOPHEN
     Indication: BACK PAIN
     Route: 048
     Dates: start: 20190104
  3. NASEA [Concomitant]
     Active Substance: RAMOSETRON HYDROCHLORIDE
     Indication: PROPHYLAXIS OF NAUSEA AND VOMITING
     Dosage: .1 MILLIGRAM
     Route: 048
     Dates: start: 20210811
  4. VENETOCLAX. [Suspect]
     Active Substance: VENETOCLAX
     Dosage: 200 MILLIGRAM
     Route: 065
     Dates: start: 20190212, end: 20190915
  5. FUROSEMIDE. [Concomitant]
     Active Substance: FUROSEMIDE
     Indication: CARDIOVASCULAR EVENT PROPHYLAXIS
     Dosage: 20 MILLIGRAM
     Route: 048
     Dates: start: 20201202
  6. LOCOID [Concomitant]
     Active Substance: HYDROCORTISONE BUTYRATE
     Indication: ERYTHEMA
     Route: 061
     Dates: start: 20201019
  7. DIAMOX SEQUELS [Concomitant]
     Active Substance: ACETAZOLAMIDE
     Indication: PROPHYLAXIS
     Dosage: 250 MILLIGRAM
     Route: 048
     Dates: start: 20181125, end: 20181201
  8. VENETOCLAX. [Suspect]
     Active Substance: VENETOCLAX
     Indication: ACUTE MYELOID LEUKAEMIA
     Dosage: 100 MILLIGRAM
     Route: 065
     Dates: start: 20181126, end: 20181126
  9. AMITIZA [Concomitant]
     Active Substance: LUBIPROSTONE
     Indication: CONSTIPATION
     Dosage: 48 MICROMOLE
     Route: 065
     Dates: start: 20200701
  10. TAKECAB [Concomitant]
     Active Substance: VONOPRAZAN FUMARATE
     Indication: CHRONIC GASTRITIS
     Dosage: 20 MILLIGRAM
     Route: 048
     Dates: start: 20201003
  11. TORSEMIDE. [Concomitant]
     Active Substance: TORSEMIDE
     Indication: CARDIOVASCULAR EVENT PROPHYLAXIS
     Dosage: 4 MILLIGRAM
     Route: 048
     Dates: start: 20201111
  12. VENETOCLAX. [Suspect]
     Active Substance: VENETOCLAX
     Dosage: 200 MILLIGRAM
     Route: 065
     Dates: start: 20181127, end: 20181127
  13. VENETOCLAX. [Suspect]
     Active Substance: VENETOCLAX
     Dosage: 400 MILLIGRAM
     Route: 065
     Dates: start: 20190107, end: 20190121
  14. MIYA?BM [Concomitant]
     Active Substance: CLOSTRIDIUM BUTYRICUM SPORES STRAIN M-55
     Indication: GASTROINTESTINAL INFECTION
     Route: 048
     Dates: start: 20181113
  15. HIRUDOID LOTION [Concomitant]
     Indication: DRY SKIN
     Route: 061
     Dates: start: 20181114
  16. PANTOSIN [Concomitant]
     Active Substance: PANTETHINE
     Indication: CONSTIPATION
     Route: 041
     Dates: start: 20201003
  17. NOXAFIL [Concomitant]
     Active Substance: POSACONAZOLE
     Indication: ANTIFUNGAL PROPHYLAXIS
     Dosage: 100 MILLIGRAM
     Route: 048
     Dates: start: 20201118
  18. AZACITIDINE. [Suspect]
     Active Substance: AZACITIDINE
     Dosage: 37.5 MILLIGRAM/SQ. METER
     Route: 058
     Dates: start: 20190930, end: 20200112
  19. AZACITIDINE. [Suspect]
     Active Substance: AZACITIDINE
     Dosage: 24.75 MILLIGRAM/SQ. METER
     Route: 058
     Dates: start: 20200304
  20. VENETOCLAX. [Suspect]
     Active Substance: VENETOCLAX
     Dosage: 400 MILLIGRAM
     Route: 065
     Dates: start: 20181128, end: 20181128
  21. MOHRUS PAP XR [Concomitant]
     Active Substance: KETOPROFEN
     Indication: SCIATICA
     Route: 062
     Dates: start: 20190515
  22. YD SOLITA?T [Concomitant]
     Indication: PROPHYLAXIS
     Route: 048
     Dates: start: 20181125, end: 20181201
  23. AZACITIDINE. [Suspect]
     Active Substance: AZACITIDINE
     Indication: ACUTE MYELOID LEUKAEMIA
     Dosage: 75 MILLIGRAM/SQ. METER
     Route: 058
     Dates: start: 20181126, end: 20190815
  24. VENETOCLAX. [Suspect]
     Active Substance: VENETOCLAX
     Dosage: 200 MILLIGRAM
     Route: 065
     Dates: start: 20181222, end: 20190106
  25. UREA CREAM [Concomitant]
     Active Substance: UREA
     Indication: DRY SKIN
     Route: 061
     Dates: start: 20210204

REACTIONS (1)
  - Enterocolitis [Unknown]

NARRATIVE: CASE EVENT DATE: 20210818
